FAERS Safety Report 8507149-2 (Version None)
Quarter: 2012Q3

REPORT INFORMATION
  Report Type: 
  Country: None (occurrence: None)
  Receive Date: 20120712
  Receipt Date: 20120702
  Transmission Date: 20120928
  Serious: Yes (Death)
  Sender: FDA-Public Use
  Company Number: JP-CELGENEUS-087-50794-12051695

PATIENT
  Sex: Male
  Weight: 58 kg

DRUGS (5)
  1. ITRACONAZOLE [Concomitant]
     Route: 065
     Dates: start: 20111020
  2. FIRSTCIN [Concomitant]
     Route: 065
     Dates: start: 20111025, end: 20111028
  3. AMIKACIN SULFATE [Concomitant]
     Route: 065
     Dates: start: 20111025, end: 20111028
  4. VIDAZA [Suspect]
     Dosage: 75 MILLIGRAM/SQ. METER
     Route: 041
     Dates: start: 20111020, end: 20111026
  5. MEROPENEM [Concomitant]
     Route: 065
     Dates: start: 20111010, end: 20111024

REACTIONS (1)
  - LUNG INFECTION [None]
